FAERS Safety Report 17099341 (Version 3)
Quarter: 2019Q4

REPORT INFORMATION
  Report Type: Spontaneous
  Country: SI (occurrence: SI)
  Receive Date: 20191202
  Receipt Date: 20191213
  Transmission Date: 20200122
  Serious: Yes (Death, Other)
  Sender: FDA-Public Use
  Company Number: SI-JNJFOC-20191129620

PATIENT

DRUGS (3)
  1. DARZALEX [Suspect]
     Active Substance: DARATUMUMAB
     Indication: PLASMA CELL MYELOMA
     Route: 065
  2. DARZALEX [Suspect]
     Active Substance: DARATUMUMAB
     Indication: AMYLOIDOSIS
  3. DARZALEX [Suspect]
     Active Substance: DARATUMUMAB
     Indication: PLASMA CELL LEUKAEMIA

REACTIONS (10)
  - Intestinal perforation [Unknown]
  - Plasma cell myeloma [Unknown]
  - Cytopenia [Unknown]
  - Plasma cell leukaemia [Unknown]
  - Infusion related reaction [Unknown]
  - Death [Fatal]
  - Epilepsy [Unknown]
  - Bone pain [Unknown]
  - Drug ineffective [Unknown]
  - Diarrhoea [Unknown]
